FAERS Safety Report 5194605-0 (Version None)
Quarter: 2006Q4

REPORT INFORMATION
  Report Type: 
  Country: None (occurrence: None)
  Receive Date: 20061229
  Receipt Date: 20061219
  Transmission Date: 20070319
  Serious: Yes (Hospitalization, Other)
  Sender: FDA-Public Use
  Company Number: US-JNJFOC-20061205611

PATIENT
  Sex: Female
  Weight: 83.92 kg

DRUGS (9)
  1. DURAGESIC-100 [Suspect]
     Indication: FIBROMYALGIA
     Route: 062
  2. DURAGESIC-100 [Suspect]
     Indication: PAIN
     Route: 062
  3. IRON [Concomitant]
     Indication: ANAEMIA
     Route: 065
  4. NIFEDIPINE [Concomitant]
     Route: 065
  5. CALCIUM [Concomitant]
     Route: 065
  6. LISINOPRIL [Concomitant]
     Indication: BLOOD PRESSURE
     Route: 065
  7. VYTORIN [Concomitant]
     Indication: BLOOD CHOLESTEROL
     Route: 065
  8. AMBIEN [Concomitant]
     Route: 065
  9. BLOOD PRESSURE MEDICATION [Concomitant]
     Indication: BLOOD PRESSURE
     Route: 065

REACTIONS (10)
  - ANOREXIA [None]
  - CONVULSION [None]
  - HALLUCINATION [None]
  - HEADACHE [None]
  - LOSS OF CONSCIOUSNESS [None]
  - MALAISE [None]
  - NAUSEA [None]
  - OVERDOSE [None]
  - PHARMACEUTICAL PRODUCT COMPLAINT [None]
  - UNRESPONSIVE TO STIMULI [None]
